FAERS Safety Report 22030713 (Version 2)
Quarter: 2023Q1

REPORT INFORMATION
  Report Type: Spontaneous
  Country: US (occurrence: US)
  Receive Date: 20230223
  Receipt Date: 20230306
  Transmission Date: 20230417
  Serious: Yes (Life-Threatening, Hospitalization)
  Sender: FDA-Public Use
  Company Number: US-TEVA-2023-US-2857480

PATIENT
  Age: 53 Year
  Sex: Female

DRUGS (1)
  1. PROPOFOL [Suspect]
     Active Substance: PROPOFOL
     Indication: General anaesthesia
     Dosage: SINGLE
     Route: 065

REACTIONS (7)
  - Pancreatitis necrotising [Recovering/Resolving]
  - Metabolic encephalopathy [Recovering/Resolving]
  - Sepsis [Recovering/Resolving]
  - Multiple organ dysfunction syndrome [Recovering/Resolving]
  - Acute respiratory failure [Unknown]
  - Pneumonia [Unknown]
  - Pneumonia [Unknown]
